FAERS Safety Report 7280537-0 (Version None)
Quarter: 2011Q1

REPORT INFORMATION
  Report Type: 
  Country: None (occurrence: None)
  Receive Date: 20110208
  Receipt Date: 20101220
  Transmission Date: 20110831
  Serious: Yes (Other)
  Sender: FDA-Public Use
  Company Number: US-BAYER-201034915NA

PATIENT
  Sex: Female

DRUGS (4)
  1. CARAFATE [Concomitant]
     Indication: PRODUCT USED FOR UNKNOWN INDICATION
  2. OCELLA [Suspect]
  3. YAZ [Suspect]
     Indication: ACNE
  4. YASMIN [Suspect]
     Indication: ACNE

REACTIONS (9)
  - NAUSEA [None]
  - BILE DUCT STONE [None]
  - WEIGHT DECREASED [None]
  - CHOLECYSTITIS CHRONIC [None]
  - VOMITING [None]
  - BILE DUCT OBSTRUCTION [None]
  - ABDOMINAL PAIN UPPER [None]
  - ERUCTATION [None]
  - DIARRHOEA [None]
